FAERS Safety Report 6915562-X (Version None)
Quarter: 2010Q3

REPORT INFORMATION
  Report Type: 
  Country: None (occurrence: None)
  Receive Date: 20100804
  Receipt Date: 20100728
  Transmission Date: 20110219
  Serious: Yes (Other)
  Sender: FDA-Public Use
  Company Number: URSO-2010-076

PATIENT
  Age: 70 Year
  Sex: Female

DRUGS (4)
  1. URSODIOL [Suspect]
     Indication: HEPATITIS C
     Dosage: 1200 MG
     Dates: start: 20100217, end: 20100317
  2. LOSARTAN POTASSIUM [Concomitant]
  3. ALDACTONE [Concomitant]
  4. LIVACT (ISOLEUCINE, LEUCINE, VALINE) [Concomitant]

REACTIONS (2)
  - CHROMATURIA [None]
  - JAUNDICE [None]
